FAERS Safety Report 8468193-7 (Version None)
Quarter: 2012Q2

REPORT INFORMATION
  Report Type: 
  Country: None (occurrence: None)
  Receive Date: 20120626
  Receipt Date: 20120614
  Transmission Date: 20120825
  Serious: Yes (Other)
  Sender: FDA-Public Use
  Company Number: JP-BRISTOL-MYERS SQUIBB COMPANY-16504540

PATIENT
  Age: 69 Year
  Sex: Male

DRUGS (4)
  1. NOVORAPID [Concomitant]
     Dosage: INJ
     Route: 058
  2. LICORICE [Concomitant]
     Route: 048
  3. LIVALO [Suspect]
     Route: 048
  4. METFORMIN HCL [Suspect]
     Indication: DIABETES MELLITUS
     Route: 048
     Dates: start: 20120130, end: 20120321

REACTIONS (2)
  - BLOOD LACTATE DEHYDROGENASE INCREASED [None]
  - ASPARTATE AMINOTRANSFERASE INCREASED [None]
